FAERS Safety Report 8900252 (Version 1)
Quarter: 2012Q4

REPORT INFORMATION
  Report Type: Report from Study
  Country: US (occurrence: US)
  Receive Date: 20121109
  Receipt Date: 20121109
  Transmission Date: 20130627
  Serious: Yes (Hospitalization, Other)
  Sender: FDA-Public Use
  Company Number: US-US-EMD SERONO, INC.-7172135

PATIENT
  Sex: Male

DRUGS (4)
  1. SAIZEN [(SOMATROPIN (RDNA ORIGIN) FOR INJECTION)] [Suspect]
     Indication: GROWTH HORMONE DEFICIENCY
     Dates: start: 20060525
  2. DDAVP [Concomitant]
     Indication: PRODUCT USED FOR UNKNOWN INDICATION
  3. VITAMIN D [Concomitant]
     Indication: PRODUCT USED FOR UNKNOWN INDICATION
  4. TEGRETOL [Concomitant]
     Indication: PRODUCT USED FOR UNKNOWN INDICATION

REACTIONS (22)
  - Nephrolithiasis [Unknown]
  - Hydronephrosis [Unknown]
  - Infectious mononucleosis [Unknown]
  - Pneumonia [Unknown]
  - Dehydration [Unknown]
  - Anaemia [Unknown]
  - Eye operation [Unknown]
  - Strabismus [Unknown]
  - Tonsillectomy [Unknown]
  - Adenoidectomy [Unknown]
  - Ear tube insertion [Unknown]
  - Dermal cyst [Unknown]
  - Abdominal pain [Unknown]
  - Constipation [Unknown]
  - Dysuria [Unknown]
  - Nystagmus [Unknown]
  - Myopia [Unknown]
  - Scotoma [Unknown]
  - Skin discolouration [Unknown]
  - Nausea [Unknown]
  - Headache [Unknown]
  - Insomnia [Unknown]
